FAERS Safety Report 6908094-6 (Version None)
Quarter: 2010Q3

REPORT INFORMATION
  Report Type: 
  Country: None (occurrence: None)
  Receive Date: 20100805
  Receipt Date: 20100727
  Transmission Date: 20110219
  Serious: Yes (Hospitalization)
  Sender: FDA-Public Use
  Company Number: US-ASTRAZENECA-2010SE35017

PATIENT
  Age: 59 Year
  Sex: Female

DRUGS (8)
  1. LISINOPRIL [Suspect]
     Dates: start: 20100707
  2. DOCETAXEL [Suspect]
  3. TYROSINE KINASE INHIBITOR [Suspect]
  4. ATENOLOL AND CHLORTHALIDONE [Suspect]
     Dates: start: 20100707
  5. LASIX [Suspect]
     Dates: start: 20100707
  6. HYDROCODONE [Concomitant]
  7. ACETAMINOPHEN [Concomitant]
  8. MORPHINE SULFATE [Concomitant]

REACTIONS (1)
  - RENAL FAILURE ACUTE [None]
